FAERS Safety Report 19224643 (Version 1)
Quarter: 2021Q2

REPORT INFORMATION
  Report Type: Spontaneous
  Country: US (occurrence: US)
  Receive Date: 20210505
  Receipt Date: 20210505
  Transmission Date: 20210717
  Serious: No
  Sender: FDA-Public Use
  Company Number: US-ROCHE-2641161

PATIENT
  Sex: Female

DRUGS (5)
  1. ESBRIET [Suspect]
     Active Substance: PIRFENIDONE
     Route: 048
     Dates: start: 202004
  2. MUCINEX [Concomitant]
     Active Substance: GUAIFENESIN
  3. SILDENAFIL CITRATE. [Concomitant]
     Active Substance: SILDENAFIL CITRATE
  4. ESBRIET [Suspect]
     Active Substance: PIRFENIDONE
     Indication: CHEST PAIN
     Dosage: TAKE 3 TABLETS (801MG) BY MOUTH 3 TIMES A DAY
     Route: 048
     Dates: start: 20200506
  5. CLARITIN?D NOS [Concomitant]
     Active Substance: LORATADINE\PSEUDOEPHEDRINE SULFATE
     Dosage: 12 HOURS

REACTIONS (4)
  - Rash [Recovered/Resolved]
  - Off label use [Unknown]
  - Intentional product use issue [Unknown]
  - Sputum increased [Recovered/Resolved]
